FAERS Safety Report 14600748 (Version 1)
Quarter: 2018Q1

REPORT INFORMATION
  Report Type: Spontaneous
  Country: US (occurrence: US)
  Receive Date: 20180305
  Receipt Date: 20180305
  Transmission Date: 20180509
  Serious: No
  Sender: FDA-Public Use
  Company Number: US-TARO-2017TAR00769

PATIENT
  Age: 36 Year
  Sex: Male

DRUGS (3)
  1. DESOXIMETASONE OINTMENT USP 0.05% [Suspect]
     Active Substance: DESOXIMETASONE
     Route: 061
  2. AVEENO BODY WASH UNSPECIFIED [Suspect]
     Active Substance: COSMETICS
     Route: 061
  3. VASELINE PURE [Suspect]
     Active Substance: PETROLATUM
     Route: 061

REACTIONS (4)
  - Application site erythema [None]
  - Erythema [Not Recovered/Not Resolved]
  - Blood immunoglobulin E increased [Not Recovered/Not Resolved]
  - Reaction to excipient [Not Recovered/Not Resolved]
